FAERS Safety Report 4616719-3 (Version None)
Quarter: 2005Q1

REPORT INFORMATION
  Report Type: 
  Country: None (occurrence: None)
  Receive Date: 20050321
  Receipt Date: 20050303
  Transmission Date: 20050727
  Serious: Yes (Hospitalization)
  Sender: FDA-Public Use
  Company Number: 200501307

PATIENT
  Age: 21 Year
  Sex: Female

DRUGS (3)
  1. DYSPORT (BOTULINUM TOXIN TYPE A) [Suspect]
     Indication: MUSCLE SPASTICITY
     Dosage: 300 UNITS ONCE IM
     Route: 030
  2. DEPAKENE [Suspect]
     Indication: EPILEPSY
  3. TEGRETOL [Suspect]
     Indication: EPILEPSY

REACTIONS (6)
  - ASTHENIA [None]
  - BACTERIA BLOOD IDENTIFIED [None]
  - DIPLOPIA [None]
  - DYSPHAGIA [None]
  - EYELID PTOSIS [None]
  - HEAD INJURY [None]
